FAERS Safety Report 4707389-4 (Version None)
Quarter: 2005Q3

REPORT INFORMATION
  Report Type: 
  Country: None (occurrence: None)
  Receive Date: 20050706
  Receipt Date: 20050627
  Transmission Date: 20060218
  Serious: Yes (Death, Disabling, Other)
  Sender: FDA-Public Use
  Company Number: PHEH2005US07224

PATIENT
  Age: 66 Year
  Sex: Male
  Weight: 74 kg

DRUGS (5)
  1. PROCRIT [Concomitant]
  2. VICODIN [Concomitant]
  3. INSULIN [Concomitant]
  4. NEURONTIN [Concomitant]
  5. ZOMETA [Suspect]
     Indication: MULTIPLE MYELOMA
     Dosage: 4 MG EVERY MONTH
     Dates: start: 20030201, end: 20050101

REACTIONS (5)
  - BONE EROSION [None]
  - DEATH [None]
  - GINGIVAL EROSION [None]
  - GINGIVAL PAIN [None]
  - PAIN IN JAW [None]
